FAERS Safety Report 12963236 (Version 2)
Quarter: 2016Q4

REPORT INFORMATION
  Report Type: Spontaneous
  Country: RO (occurrence: RO)
  Receive Date: 20161122
  Receipt Date: 20161206
  Transmission Date: 20170207
  Serious: Yes (Other)
  Sender: FDA-Public Use
  Company Number: RO-SUN PHARMACEUTICAL INDUSTRIES LTD-2016RR-127866

PATIENT
  Age: 55 Year
  Sex: Male

DRUGS (3)
  1. LEVOMEPROMAZINE [Suspect]
     Active Substance: LEVOMEPROMAZINE
     Indication: SCHIZOPHRENIA
     Dosage: 25 MG
     Route: 065
  2. VALPROIC ACID. [Suspect]
     Active Substance: VALPROIC ACID
     Indication: SCHIZOPHRENIA
     Dosage: 500 MG
     Route: 065
  3. RISPERIDONE. [Suspect]
     Active Substance: RISPERIDONE
     Indication: SCHIZOPHRENIA
     Dosage: 25 MG, LONG-ACTING INJECTABLE
     Route: 065

REACTIONS (1)
  - Cerebrovascular disorder [Unknown]
